FAERS Safety Report 8585594-7 (Version None)
Quarter: 2012Q3

REPORT INFORMATION
  Report Type: 
  Country: None (occurrence: None)
  Receive Date: 20120810
  Receipt Date: 20120731
  Transmission Date: 20120928
  Serious: Yes (Other)
  Sender: FDA-Public Use
  Company Number: US-BAYER-2012-045722

PATIENT
  Age: 31 Year
  Sex: Female

DRUGS (4)
  1. KEFLEX [Concomitant]
  2. YAZ [Suspect]
  3. ASPIRIN [Concomitant]
  4. YASMIN [Suspect]

REACTIONS (9)
  - ANXIETY [None]
  - ANHEDONIA [None]
  - PULMONARY EMBOLISM [None]
  - INJURY [None]
  - PAIN [None]
  - THROMBOPHLEBITIS SUPERFICIAL [None]
  - QUALITY OF LIFE DECREASED [None]
  - DEEP VEIN THROMBOSIS [None]
  - FEAR [None]
